FAERS Safety Report 6906948-8 (Version None)
Quarter: 2010Q3

REPORT INFORMATION
  Report Type: 
  Country: None (occurrence: None)
  Receive Date: 20100802
  Receipt Date: 20100720
  Transmission Date: 20110219
  Serious: Yes (Hospitalization)
  Sender: FDA-Public Use
  Company Number: 7011817

PATIENT
  Age: 16 Year
  Sex: Male

DRUGS (2)
  1. SAIZEN [Suspect]
     Indication: GROWTH HORMONE DEFICIENCY
     Dosage: 1.6 MG ; 1.6 MG
     Dates: start: 20100320, end: 20100601
  2. SAIZEN [Suspect]
     Indication: GROWTH HORMONE DEFICIENCY
     Dosage: 1.6 MG ; 1.6 MG
     Dates: start: 20100101

REACTIONS (1)
  - PNEUMONIA [None]
